FAERS Safety Report 11047069 (Version 1)
Quarter: 2015Q2

REPORT INFORMATION
  Report Type: Spontaneous
  Country: US (occurrence: US)
  Receive Date: 20150420
  Receipt Date: 20150420
  Transmission Date: 20150821
  Serious: No
  Sender: FDA-Public Use
  Company Number: US-LEO PHARMA-232934

PATIENT
  Age: 74 Year
  Sex: Female

DRUGS (1)
  1. PICATO [Suspect]
     Active Substance: INGENOL MEBUTATE
     Indication: ACTINIC KERATOSIS
     Route: 061
     Dates: start: 20150217, end: 20150219

REACTIONS (5)
  - Application site swelling [Recovering/Resolving]
  - Application site exfoliation [Not Recovered/Not Resolved]
  - Application site erythema [Recovering/Resolving]
  - Application site pain [Recovered/Resolved]
  - Application site reaction [Recovering/Resolving]

NARRATIVE: CASE EVENT DATE: 20150217
